FAERS Safety Report 18606878 (Version 1)
Quarter: 2020Q4

REPORT INFORMATION
  Report Type: Report from Study
  Country: US (occurrence: US)
  Receive Date: 20201211
  Receipt Date: 20201211
  Transmission Date: 20210114
  Serious: Yes (Death)
  Sender: FDA-Public Use
  Company Number: US-ASTRAZENECA-2020SF65381

PATIENT
  Age: 43 Year
  Sex: Female

DRUGS (8)
  1. DEXAMETHASONE. [Concomitant]
     Active Substance: DEXAMETHASONE
  2. GLIPIZIDE. [Concomitant]
     Active Substance: GLIPIZIDE
  3. METFORMIN [Concomitant]
     Active Substance: METFORMIN HYDROCHLORIDE
  4. TAGRISSO [Suspect]
     Active Substance: OSIMERTINIB
     Indication: NON-SMALL CELL LUNG CANCER
     Route: 048
  5. TAGRISSO [Suspect]
     Active Substance: OSIMERTINIB
     Indication: METASTASES TO CENTRAL NERVOUS SYSTEM
     Route: 048
  6. METHYLPREDNISOLONE. [Concomitant]
     Active Substance: METHYLPREDNISOLONE
  7. LEVEMIR [Concomitant]
     Active Substance: INSULIN DETEMIR
  8. OXYCODONE [Concomitant]
     Active Substance: OXYCODONE

REACTIONS (1)
  - Death [Fatal]
